FAERS Safety Report 19350992 (Version 1)
Quarter: 2021Q2

REPORT INFORMATION
  Report Type: Spontaneous
  Country: US (occurrence: US)
  Receive Date: 20210531
  Receipt Date: 20210531
  Transmission Date: 20210717
  Serious: Yes (Other)
  Sender: FDA-Public Use
  Company Number: US-GLAXOSMITHKLINE-US2021GSK113975

PATIENT
  Sex: Female

DRUGS (8)
  1. RANITIDINE. [Suspect]
     Active Substance: RANITIDINE
     Indication: REFLUX GASTRITIS
  2. ZANTAC [Suspect]
     Active Substance: RANITIDINE HYDROCHLORIDE
     Indication: REFLUX GASTRITIS
  3. ZANTAC [Suspect]
     Active Substance: RANITIDINE HYDROCHLORIDE
     Indication: HYPERCHLORHYDRIA
     Dosage: 40 MG, QD
     Route: 065
     Dates: start: 2000, end: 2018
  4. ZANTAC [Suspect]
     Active Substance: RANITIDINE HYDROCHLORIDE
     Indication: REFLUX GASTRITIS
  5. ZANTAC [Suspect]
     Active Substance: RANITIDINE HYDROCHLORIDE
     Indication: HYPERCHLORHYDRIA
     Dosage: 40 MG, QD
     Route: 065
     Dates: start: 2000, end: 2018
  6. RANITIDINE. [Suspect]
     Active Substance: RANITIDINE
     Indication: REFLUX GASTRITIS
  7. RANITIDINE. [Suspect]
     Active Substance: RANITIDINE
     Indication: HYPERCHLORHYDRIA
     Dosage: 40 MG, QD
     Route: 065
     Dates: start: 2000, end: 2018
  8. RANITIDINE. [Suspect]
     Active Substance: RANITIDINE
     Indication: HYPERCHLORHYDRIA
     Dosage: 40 MG, QD
     Route: 065
     Dates: start: 2000, end: 2018

REACTIONS (1)
  - Renal cancer [Unknown]
